FAERS Safety Report 16182809 (Version 1)
Quarter: 2019Q2

REPORT INFORMATION
  Report Type: Spontaneous
  Country: US (occurrence: US)
  Receive Date: 20190411
  Receipt Date: 20190411
  Transmission Date: 20190711
  Serious: Yes (Hospitalization)
  Sender: FDA-Public Use
  Company Number: US-GLAXOSMITHKLINE-US2019GSK064778

PATIENT
  Sex: Female

DRUGS (2)
  1. OXYGEN. [Concomitant]
     Active Substance: OXYGEN
  2. TRELEGY ELLIPTA [Suspect]
     Active Substance: FLUTICASONE FUROATE\UMECLIDINIUM BROMIDE\VILANTEROL TRIFENATATE
     Indication: CHRONIC OBSTRUCTIVE PULMONARY DISEASE
     Dosage: UNK
     Route: 055
     Dates: start: 201803

REACTIONS (4)
  - Anxiety [Unknown]
  - Osteoporosis [Unknown]
  - Asthma [Unknown]
  - Chronic obstructive pulmonary disease [Unknown]
